FAERS Safety Report 6985664-0 (Version None)
Quarter: 2010Q3

REPORT INFORMATION
  Report Type: 
  Country: None (occurrence: None)
  Receive Date: 20100915
  Receipt Date: 20100908
  Transmission Date: 20110219
  Serious: Yes (Death, Hospitalization, Other)
  Sender: FDA-Public Use
  Company Number: JP-JNJFOC-20100607742

PATIENT
  Sex: Male
  Weight: 52 kg

DRUGS (14)
  1. ITRIZOLE [Suspect]
     Indication: ORAL CANDIDIASIS
     Route: 048
  2. TAKEPRON [Suspect]
     Indication: GASTRIC ULCER
     Route: 048
  3. TAKEPRON [Suspect]
     Indication: GASTRITIS
     Route: 048
  4. FLUOROURACIL [Suspect]
     Indication: PRODUCT USED FOR UNKNOWN INDICATION
     Route: 065
  5. CISPLATIN [Suspect]
     Indication: PRODUCT USED FOR UNKNOWN INDICATION
     Route: 041
  6. OXINORM [Concomitant]
     Indication: CANCER PAIN
     Route: 048
  7. OXYCONTIN [Concomitant]
     Indication: CANCER PAIN
     Route: 048
  8. PRIMPERAN TAB [Concomitant]
     Indication: VOMITING
     Route: 048
  9. LOXONIN [Concomitant]
     Indication: CANCER PAIN
     Route: 048
  10. REBAMIPIDE [Concomitant]
     Indication: CANCER PAIN
     Route: 048
  11. RINDERON [Concomitant]
     Indication: DECREASED APPETITE
     Route: 048
  12. RINDERON [Concomitant]
     Indication: CANCER PAIN
     Route: 048
  13. AZELASTINE HCL [Concomitant]
     Indication: HYPERTENSION
     Route: 048
  14. ZYLORIC [Concomitant]
     Indication: GOUT
     Route: 048

REACTIONS (3)
  - INTERSTITIAL LUNG DISEASE [None]
  - MELAENA [None]
  - OESOPHAGEAL CARCINOMA [None]
